FAERS Safety Report 23680771 (Version 1)
Quarter: 2024Q1

REPORT INFORMATION
  Report Type: Spontaneous
  Country: FR (occurrence: FR)
  Receive Date: 20240328
  Receipt Date: 20240328
  Transmission Date: 20240410
  Serious: Yes (Death, Other)
  Sender: FDA-Public Use
  Company Number: FR-CELLTRION INC.-2024FR007335

PATIENT

DRUGS (2)
  1. RITUXIMAB [Suspect]
     Active Substance: RITUXIMAB
     Indication: Microscopic polyangiitis
     Dosage: 1 DF
     Route: 042
     Dates: start: 201810
  2. PREDNISONE [Suspect]
     Active Substance: PREDNISONE
     Indication: Microscopic polyangiitis
     Dosage: 5 MG
     Route: 048
     Dates: start: 201810

REACTIONS (2)
  - Immunodeficiency [Fatal]
  - Viral infection [Fatal]

NARRATIVE: CASE EVENT DATE: 20201001
